FAERS Safety Report 6690240-3 (Version None)
Quarter: 2010Q2

REPORT INFORMATION
  Report Type: 
  Country: None (occurrence: None)
  Receive Date: 20100412
  Receipt Date: 20091221
  Transmission Date: 20101027
  Serious: No
  Sender: FDA-Public Use
  Company Number: 1000010148

PATIENT
  Age: 53 Year
  Sex: Female

DRUGS (3)
  1. BYSTOLIC [Suspect]
     Indication: HYPERTENSION
     Dosage: 5 MG (5 MG, 1 IN 1 AS REQUIRED), ORAL
     Route: 048
     Dates: start: 20091001
  2. XANAX [Suspect]
     Indication: PANIC ATTACK
     Dosage: (0.25 MG, 1 IN 1 AS REQUIRED), ORAL
     Route: 048
  3. VITAMIN TAB [Concomitant]

REACTIONS (1)
  - HEADACHE [None]
